FAERS Safety Report 19765795 (Version 2)
Quarter: 2021Q3

REPORT INFORMATION
  Report Type: Report from Study
  Country: None (occurrence: US)
  Receive Date: 20210831
  Receipt Date: 20210915
  Transmission Date: 20211014
  Serious: Yes (Hospitalization)
  Sender: FDA-Public Use
  Company Number: US-ULTRAGENYX PHARMACEUTICAL INC.-US-UGNX-21-00277

PATIENT
  Sex: Female

DRUGS (2)
  1. DOJOLVI [Suspect]
     Active Substance: TRIHEPTANOIN
     Indication: FATTY ACID OXIDATION DISORDER
     Route: 048
     Dates: start: 20201120
  2. DOJOLVI [Suspect]
     Active Substance: TRIHEPTANOIN
     Dosage: 5ML, FIVE TIMES PER DAY, VIA G?TUBE
     Dates: start: 202012

REACTIONS (1)
  - Respiratory tract infection [Not Recovered/Not Resolved]
